FAERS Safety Report 7488137-4 (Version None)
Quarter: 2011Q2

REPORT INFORMATION
  Report Type: 
  Country: None (occurrence: None)
  Receive Date: 20110518
  Receipt Date: 20110516
  Transmission Date: 20111010
  Serious: Yes (Other)
  Sender: FDA-Public Use
  Company Number: US-PFIZER INC-2011105781

PATIENT
  Sex: Male
  Weight: 99.773 kg

DRUGS (9)
  1. RISPERIDONE [Concomitant]
     Indication: PARANOIA
  2. ADDERALL 10 [Concomitant]
     Indication: ATTENTION DEFICIT/HYPERACTIVITY DISORDER
     Dosage: 20 MG, 2X/DAY
  3. WELLBUTRIN SR [Concomitant]
     Indication: DEPRESSION
     Dosage: 100 MG, DAILY
     Route: 048
  4. CHANTIX [Suspect]
     Dosage: 0.5 MG, 2X/DAY
     Route: 048
     Dates: start: 20110501, end: 20110516
  5. ALPRAZOLAM [Concomitant]
     Indication: PANIC ATTACK
  6. ZOLOFT [Concomitant]
     Indication: DEPRESSION
     Dosage: DAILY
  7. RISPERIDONE [Concomitant]
     Indication: BIPOLAR DISORDER
     Dosage: 3 MG, DAILY
  8. ALPRAZOLAM [Concomitant]
     Indication: NERVOUS SYSTEM DISORDER
     Dosage: 0.5 MG, 4X/DAY
  9. CHANTIX [Suspect]
     Indication: SMOKING CESSATION THERAPY
     Dosage: 0.5 MG, 1X/DAY
     Route: 048
     Dates: start: 20110509, end: 20110501

REACTIONS (6)
  - NASAL OEDEMA [None]
  - PHARYNGEAL OEDEMA [None]
  - PARANOIA [None]
  - PANIC ATTACK [None]
  - DYSPNOEA [None]
  - DEPRESSION [None]
